FAERS Safety Report 14415379 (Version 3)
Quarter: 2018Q2

REPORT INFORMATION
  Report Type: Report from Study
  Country: TW (occurrence: TW)
  Receive Date: 20180121
  Receipt Date: 20180409
  Transmission Date: 20180711
  Serious: Yes (Hospitalization)
  Sender: FDA-Public Use
  Company Number: PHHY2016TW016758

PATIENT
  Age: 78 Year
  Sex: Male
  Weight: 61.7 kg

DRUGS (26)
  1. RIVAROXABAN [Concomitant]
     Active Substance: RIVAROXABAN
     Indication: ATRIAL FIBRILLATION
     Dosage: 10 MG, UNK
     Route: 048
     Dates: start: 20150812, end: 20150826
  2. RIVAROXABAN [Concomitant]
     Active Substance: RIVAROXABAN
     Dosage: 15 MG, UNK
     Route: 048
     Dates: start: 20150826, end: 20161014
  3. TRIAMCINOLONE [Concomitant]
     Active Substance: TRIAMCINOLONE
     Indication: PRODUCT USED FOR UNKNOWN INDICATION
     Dosage: 5 MG, UNK
     Route: 065
     Dates: start: 20160722, end: 20160722
  4. IMDUR [Concomitant]
     Active Substance: ISOSORBIDE MONONITRATE
     Indication: ATRIAL FIBRILLATION
     Dosage: 60 MG, UNK
     Route: 048
     Dates: start: 20150629, end: 20150706
  5. TASIGNA [Suspect]
     Active Substance: NILOTINIB
     Indication: CHRONIC MYELOID LEUKAEMIA
     Dosage: 600 OT, UNK
     Route: 048
     Dates: start: 20150521
  6. LIDOCAINE. [Concomitant]
     Active Substance: LIDOCAINE
     Indication: PRODUCT USED FOR UNKNOWN INDICATION
     Dosage: 5 ML, UNK
     Route: 065
     Dates: start: 20160722, end: 20160722
  7. RIVAROXABAN [Concomitant]
     Active Substance: RIVAROXABAN
     Dosage: 15 MG, UNK
     Route: 048
     Dates: start: 20161125, end: 20161201
  8. DIPYRIDAMOLE. [Concomitant]
     Active Substance: DIPYRIDAMOLE
     Indication: PRODUCT USED FOR UNKNOWN INDICATION
     Dosage: 75 MG, UNK
     Route: 048
     Dates: start: 20150803, end: 20150804
  9. HEPARIN [Concomitant]
     Active Substance: HEPARIN SODIUM
     Indication: PRODUCT USED FOR UNKNOWN INDICATION
     Dosage: 15 KIU, UNK
     Route: 042
     Dates: start: 20150804, end: 20150804
  10. FEBUXOSTAT. [Concomitant]
     Active Substance: FEBUXOSTAT
     Indication: PROPHYLAXIS
     Dosage: 40 MG, UNK
     Route: 048
     Dates: start: 20150528, end: 20150603
  11. ACETYLSALICYLIC ACID [Concomitant]
     Active Substance: ASPIRIN
     Indication: ATRIAL FIBRILLATION
     Dosage: 100 MG, UNK
     Route: 048
     Dates: start: 20150706, end: 20150811
  12. IMDUR [Concomitant]
     Active Substance: ISOSORBIDE MONONITRATE
     Dosage: 30 MG, UNK
     Route: 048
     Dates: start: 20150706, end: 20150811
  13. SENNOSIDE [Concomitant]
     Active Substance: SENNOSIDES
     Dosage: 12 MG, UNK
     Route: 048
     Dates: start: 20170721, end: 20170804
  14. IOHEXOL [Concomitant]
     Active Substance: IOHEXOL
     Indication: PRODUCT USED FOR UNKNOWN INDICATION
     Dosage: 40 ML, UNK
     Route: 065
     Dates: start: 20150804, end: 20150804
  15. TAMSULOSIN [Concomitant]
     Active Substance: TAMSULOSIN
     Indication: BENIGN PROSTATIC HYPERPLASIA
     Dosage: 0.2 MG, UNK
     Route: 048
     Dates: start: 20170418, end: 20170622
  16. TAMSULOSIN [Concomitant]
     Active Substance: TAMSULOSIN
     Dosage: 0.2 MG, UNK
     Route: 048
     Dates: start: 20170707
  17. VALSARTAN. [Concomitant]
     Active Substance: VALSARTAN
     Indication: ESSENTIAL HYPERTENSION
     Dosage: 80 MG, UNK
     Route: 048
     Dates: start: 20161122, end: 20170512
  18. SENNOSIDE [Concomitant]
     Active Substance: SENNOSIDES
     Indication: CONSTIPATION
     Dosage: 12 MG, UNK
     Route: 048
     Dates: start: 20150720, end: 20150811
  19. XARELTO [Concomitant]
     Active Substance: RIVAROXABAN
     Indication: PRODUCT USED FOR UNKNOWN INDICATION
     Dosage: 15 MG, UNK
     Route: 048
     Dates: start: 20150804, end: 20150812
  20. HYDROXYUREA. [Concomitant]
     Active Substance: HYDROXYUREA
     Indication: PROPHYLAXIS
     Dosage: 1000 MG, UNK
     Route: 048
     Dates: start: 20150528, end: 20150603
  21. SENNOSIDE [Concomitant]
     Active Substance: SENNOSIDES
     Dosage: 24 MG, UNK
     Route: 048
     Dates: start: 20180112, end: 20180118
  22. OXYBUTYNIN. [Concomitant]
     Active Substance: OXYBUTYNIN CHLORIDE
     Indication: BENIGN PROSTATIC HYPERPLASIA
     Dosage: 5 MG, UNK
     Route: 048
     Dates: start: 20160309, end: 20160330
  23. SENNOSIDE [Concomitant]
     Active Substance: SENNOSIDES
     Indication: PROPHYLAXIS
     Dosage: 24 MG, UNK
     Route: 048
     Dates: start: 20150812, end: 20161014
  24. ETORICOXIB [Concomitant]
     Active Substance: ETORICOXIB
     Indication: PRODUCT USED FOR UNKNOWN INDICATION
     Dosage: 60 MG, UNK
     Route: 048
     Dates: start: 20160722, end: 20160729
  25. CLOPIDOGREL [Concomitant]
     Active Substance: CLOPIDOGREL BISULFATE
     Indication: PRODUCT USED FOR UNKNOWN INDICATION
     Dosage: 300 MG, UNK
     Route: 048
     Dates: start: 20150803, end: 20150803
  26. VERAPAMIL [Concomitant]
     Active Substance: VERAPAMIL HYDROCHLORIDE
     Indication: PRODUCT USED FOR UNKNOWN INDICATION
     Dosage: 1 MG, UNK
     Route: 065
     Dates: start: 20150804, end: 20150804

REACTIONS (10)
  - Productive cough [Recovering/Resolving]
  - Pneumonia [Recovered/Resolved]
  - Chills [Recovering/Resolving]
  - Muscular weakness [Recovering/Resolving]
  - Pyrexia [Recovering/Resolving]
  - Leukocytosis [Recovered/Resolved]
  - Neutrophilia [Recovered/Resolved]
  - Gingival bleeding [Recovered/Resolved]
  - Upper respiratory tract infection [Recovered/Resolved]
  - Upper respiratory tract infection [Recovered/Resolved]

NARRATIVE: CASE EVENT DATE: 20151110
